FAERS Safety Report 11488946 (Version 1)
Quarter: 2015Q3

REPORT INFORMATION
  Report Type: Spontaneous
  Country: US (occurrence: US)
  Receive Date: 20150910
  Receipt Date: 20150910
  Transmission Date: 20151125
  Serious: No
  Sender: FDA-Public Use
  Company Number: US-ROCHE-1456712

PATIENT
  Sex: Male

DRUGS (3)
  1. MELATONIN [Concomitant]
     Active Substance: MELATONIN
  2. ZANTAC [Concomitant]
     Active Substance: RANITIDINE HYDROCHLORIDE
  3. PEGASYS [Suspect]
     Active Substance: PEGINTERFERON ALFA-2A
     Indication: CHRONIC HEPATITIS C
     Route: 058
     Dates: start: 20140809

REACTIONS (3)
  - Tremor [Unknown]
  - Body temperature fluctuation [Unknown]
  - Dry skin [Unknown]
